FAERS Safety Report 6310772-7 (Version None)
Quarter: 2009Q3

REPORT INFORMATION
  Report Type: 
  Country: None (occurrence: None)
  Receive Date: 20090812
  Receipt Date: 20090806
  Transmission Date: 20100115
  Serious: Yes (Death)
  Sender: FDA-Public Use
  Company Number: CHPA2009US16494

PATIENT
  Sex: Male

DRUGS (1)
  1. DESENEX [Suspect]
     Indication: TINEA PEDIS
     Dosage: TOPICAL
     Route: 061

REACTIONS (2)
  - INTENTIONAL DRUG MISUSE [None]
  - LUNG NEOPLASM MALIGNANT [None]
